FAERS Safety Report 21999795 (Version 1)
Quarter: 2023Q1

REPORT INFORMATION
  Report Type: Spontaneous
  Country: US (occurrence: None)
  Receive Date: 20230215
  Receipt Date: 20230215
  Transmission Date: 20230417
  Serious: No
  Sender: FDA-Public Use
  Company Number: None

PATIENT
  Age: 20 Year
  Sex: Female
  Weight: 87.75 kg

DRUGS (1)
  1. BRETHINE [Suspect]
     Active Substance: TERBUTALINE SULFATE
     Indication: Postponement of preterm delivery
     Dates: start: 20230214, end: 20230214

REACTIONS (5)
  - Fatigue [None]
  - Asthenia [None]
  - Tremor [None]
  - Heart rate increased [None]
  - Baseline foetal heart rate variability disorder [None]

NARRATIVE: CASE EVENT DATE: 20230214
